FAERS Safety Report 7064682-0 (Version None)
Quarter: 2010Q4

REPORT INFORMATION
  Report Type: 
  Country: None (occurrence: None)
  Receive Date: 20101022
  Receipt Date: 20101022
  Transmission Date: 20110411
  Serious: No
  Sender: FDA-Public Use
  Company Number: None

PATIENT
  Age: 57 Year
  Sex: Male

DRUGS (1)
  1. SANDIMMUNE [Suspect]
     Dosage: TAKE 1 CAPSULE TWICE A DAY

REACTIONS (2)
  - DRUG LEVEL DECREASED [None]
  - PRODUCT QUALITY ISSUE [None]
